FAERS Safety Report 19084129 (Version 6)
Quarter: 2021Q4

REPORT INFORMATION
  Report Type: Report from Study
  Country: CN (occurrence: CN)
  Receive Date: 20210401
  Receipt Date: 20211027
  Transmission Date: 20220303
  Serious: Yes (Hospitalization)
  Sender: FDA-Public Use
  Company Number: CN-OTSUKA-2021_009936

PATIENT
  Age: 26 Year
  Sex: Male
  Weight: 90 kg

DRUGS (9)
  1. BREXPIPRAZOLE [Suspect]
     Active Substance: BREXPIPRAZOLE
     Indication: Schizophrenia
     Dosage: (BREXPIPRAZOLE/PLACEBO)
     Route: 048
     Dates: start: 20210316, end: 20210319
  2. BREXPIPRAZOLE [Suspect]
     Active Substance: BREXPIPRAZOLE
     Dosage: (ABILIFY/PLACEBO)
     Route: 048
     Dates: start: 20210316, end: 20210319
  3. ALPRAZOLAM [Concomitant]
     Active Substance: ALPRAZOLAM
     Indication: Insomnia
     Dosage: 0.4 MG, QD (QN)
     Route: 048
     Dates: start: 20210311, end: 20210311
  4. CLONAZEPAM [Concomitant]
     Active Substance: CLONAZEPAM
     Indication: Anxiety
     Dosage: 1 MG, QD (QN)
     Route: 048
     Dates: start: 20210312, end: 20210317
  5. CLONAZEPAM [Concomitant]
     Active Substance: CLONAZEPAM
     Indication: Insomnia
     Dosage: 2 G, QD (QN)
     Route: 048
     Dates: start: 20210318, end: 20210320
  6. CLONAZEPAM [Concomitant]
     Active Substance: CLONAZEPAM
     Dosage: 3 MG, QD (QN)
     Route: 048
     Dates: start: 20210321, end: 20210322
  7. CLONAZEPAM [Concomitant]
     Active Substance: CLONAZEPAM
     Dosage: 2 G, QD (QN)
     Route: 048
     Dates: start: 20210323, end: 20210327
  8. CLONAZEPAM [Concomitant]
     Active Substance: CLONAZEPAM
     Dosage: 3 MG, QD (QN)
     Route: 048
     Dates: start: 20210328, end: 20210408
  9. CLONAZEPAM [Concomitant]
     Active Substance: CLONAZEPAM
     Dosage: 2 MG, QD (QN)
     Route: 048
     Dates: start: 20210409, end: 20210414

REACTIONS (2)
  - Autonomic nervous system imbalance [Recovered/Resolved]
  - Anxiety [Recovered/Resolved]

NARRATIVE: CASE EVENT DATE: 20210322
